FAERS Safety Report 6787623-X (Version None)
Quarter: 2010Q2

REPORT INFORMATION
  Report Type: 
  Country: None (occurrence: None)
  Receive Date: 20100623
  Receipt Date: 20040517
  Transmission Date: 20101027
  Serious: No
  Sender: FDA-Public Use
  Company Number: US-PFIZER INC-2007059440

PATIENT
  Age: 19 Year
  Sex: Female

DRUGS (2)
  1. DOSTINEX [Suspect]
  2. OTHER NERVOUS SYSTEM DRUGS [Concomitant]

REACTIONS (3)
  - AGITATION [None]
  - FEAR [None]
  - NERVOUSNESS [None]
